FAERS Safety Report 6604884-8 (Version None)
Quarter: 2010Q1

REPORT INFORMATION
  Report Type: 
  Country: None (occurrence: None)
  Receive Date: 20100226
  Receipt Date: 20100222
  Transmission Date: 20100710
  Serious: Yes (Hospitalization)
  Sender: FDA-Public Use
  Company Number: B0623630A

PATIENT
  Sex: Male

DRUGS (7)
  1. PANDEMRIX H1N1 [Suspect]
     Indication: PROPHYLAXIS
     Route: 030
     Dates: start: 20091209, end: 20091209
  2. VENTOLIN [Suspect]
     Indication: ASTHMA
     Route: 055
     Dates: end: 20091218
  3. SERETIDE [Suspect]
     Indication: ASTHMA
     Route: 055
     Dates: end: 20091218
  4. FLIXOTIDE [Suspect]
     Indication: ASTHMA
     Route: 055
     Dates: end: 20091218
  5. OMEPRAZOLE [Suspect]
     Indication: DRUG USE FOR UNKNOWN INDICATION
     Route: 048
     Dates: end: 20091218
  6. HYDROCORTISONE HEMISUCCINATE [Concomitant]
     Dosage: 30MG PER DAY
     Route: 048
  7. UVEDOSE [Concomitant]
     Indication: DRUG USE FOR UNKNOWN INDICATION
     Route: 065

REACTIONS (16)
  - ABNORMAL BEHAVIOUR [None]
  - AGITATION [None]
  - ALLERGIC GRANULOMATOUS ANGIITIS [None]
  - APATHY [None]
  - ASTHENIA [None]
  - ASTHMATIC CRISIS [None]
  - CONFUSIONAL STATE [None]
  - DEPRESSED LEVEL OF CONSCIOUSNESS [None]
  - DISORIENTATION [None]
  - DISTURBANCE IN ATTENTION [None]
  - ENCEPHALITIS [None]
  - EOSINOPHILIA [None]
  - HYPERAESTHESIA [None]
  - IRRITABILITY [None]
  - MYALGIA [None]
  - PYREXIA [None]
